FAERS Safety Report 20073460 (Version 1)
Quarter: 2021Q4

REPORT INFORMATION
  Report Type: Report from Study
  Country: CN (occurrence: None)
  Receive Date: 20211116
  Receipt Date: 20211116
  Transmission Date: 20220303
  Serious: Yes (Hospitalization)
  Sender: FDA-Public Use
  Company Number: CN-ROCHE-2841181

PATIENT
  Age: 6 Year
  Sex: Male
  Weight: 31 kg

DRUGS (7)
  1. TOCILIZUMAB [Suspect]
     Active Substance: TOCILIZUMAB
     Indication: Still^s disease
     Dosage: DATE OF LAST DOSE PRIOR TO ADVERSE EVENT ONSET: 06/APR/2021, 244 MG
     Route: 042
     Dates: start: 20200422
  2. METHOTREXATE [Concomitant]
     Active Substance: METHOTREXATE
     Dates: start: 201909
  3. FOLIC ACID [Concomitant]
     Active Substance: FOLIC ACID
     Dates: start: 20200321
  4. CALCIUM CARBONATE;VITAMIN D3 [Concomitant]
     Dates: start: 20200321
  5. ALFACALCIDOL [Concomitant]
     Active Substance: ALFACALCIDOL
     Dates: start: 20200322
  6. NAPROXEN [Concomitant]
     Active Substance: NAPROXEN
     Route: 065
     Dates: start: 20200716
  7. PREDNISONE ACETATE [Concomitant]
     Active Substance: PREDNISONE ACETATE
     Dates: start: 20210310

REACTIONS (1)
  - Pyrexia [Recovered/Resolved]

NARRATIVE: CASE EVENT DATE: 20210518
